FAERS Safety Report 24243092 (Version 1)
Quarter: 2024Q3

REPORT INFORMATION
  Report Type: Spontaneous
  Country: FR (occurrence: FR)
  Receive Date: 20240823
  Receipt Date: 20240823
  Transmission Date: 20241016
  Serious: Yes (Other)
  Sender: NOVARTIS
  Company Number: None

PATIENT
  Age: 44 Year
  Sex: Male
  Weight: 85 kg

DRUGS (1)
  1. COSENTYX [Suspect]
     Active Substance: SECUKINUMAB
     Indication: Psoriasis
     Dosage: 300 MG, (COSENTYX 300 MG STYLOS : 1 INJECTION ? S0, S1, S2, S3, S4 PUIS TOUTES LES 4 SEMAINES)
     Route: 023
     Dates: start: 20240613, end: 20240627

REACTIONS (2)
  - Paradoxical psoriasis [Recovering/Resolving]
  - Palmoplantar keratoderma [Recovering/Resolving]

NARRATIVE: CASE EVENT DATE: 20240628
